FAERS Safety Report 4893193-3 (Version None)
Quarter: 2005Q4

REPORT INFORMATION
  Report Type: 
  Country: None (occurrence: None)
  Receive Date: 20051223
  Receipt Date: 20050906
  Transmission Date: 20060501
  Serious: No
  Sender: FDA-Public Use
  Company Number: 2005PV001852

PATIENT
  Age: 79 Year
  Sex: Male

DRUGS (4)
  1. SYMLIN [Suspect]
     Indication: DIABETES MELLITUS NON-INSULIN-DEPENDENT
     Dosage: 120 MCG;BID;SC
     Route: 058
     Dates: start: 20050823
  2. GLUCOPHAGE [Concomitant]
  3. HUMULIN R [Concomitant]
  4. LANTUS [Concomitant]

REACTIONS (4)
  - DECREASED APPETITE [None]
  - FALL [None]
  - SKIN LACERATION [None]
  - WOUND INFECTION [None]
